FAERS Safety Report 15460355 (Version 1)
Quarter: 2018Q4

REPORT INFORMATION
  Report Type: Spontaneous
  Country: US (occurrence: US)
  Receive Date: 20181003
  Receipt Date: 20181003
  Transmission Date: 20190204
  Serious: Yes (Other)
  Sender: FDA-Public Use
  Company Number: US-JNJFOC-20180930763

PATIENT
  Age: 56 Year
  Sex: Male
  Weight: 79.38 kg

DRUGS (7)
  1. BACLOFEN. [Interacting]
     Active Substance: BACLOFEN
     Indication: SPINAL CORD INJURY
     Route: 037
     Dates: start: 2012
  2. BACLOFEN. [Interacting]
     Active Substance: BACLOFEN
     Indication: DYSKINESIA
     Route: 037
     Dates: start: 2012
  3. BACLOFEN. [Interacting]
     Active Substance: BACLOFEN
     Indication: DYSKINESIA
     Route: 048
     Dates: start: 2012
  4. XARELTO [Suspect]
     Active Substance: RIVAROXABAN
     Indication: PULMONARY EMBOLISM
     Route: 048
     Dates: start: 201708, end: 201708
  5. BACLOFEN. [Interacting]
     Active Substance: BACLOFEN
     Indication: SPINAL CORD INJURY
     Route: 048
     Dates: start: 2012
  6. FENOFIBRATE. [Concomitant]
     Active Substance: FENOFIBRATE
     Indication: BLOOD TRIGLYCERIDES ABNORMAL
     Route: 048
     Dates: start: 2016
  7. VALIUM [Concomitant]
     Active Substance: DIAZEPAM
     Indication: MUSCLE RELAXANT THERAPY
     Route: 048
     Dates: start: 2012

REACTIONS (4)
  - Abdominal pain [Recovered/Resolved]
  - Drug interaction [Recovered/Resolved]
  - Respiratory distress [Recovered/Resolved]
  - Hypersensitivity [Recovered/Resolved]

NARRATIVE: CASE EVENT DATE: 201708
